FAERS Safety Report 10394741 (Version 3)
Quarter: 2014Q3

REPORT INFORMATION
  Report Type: Report from Study
  Country: BE (occurrence: BE)
  Receive Date: 20140820
  Receipt Date: 20140826
  Transmission Date: 20150326
  Serious: Yes (Hospitalization)
  Sender: FDA-Public Use
  Company Number: BE-ROCHE-1448325

PATIENT
  Age: 67 Year
  Sex: Male

DRUGS (55)
  1. FLUDARABINE [Suspect]
     Active Substance: FLUDARABINE PHOSPHATE
     Dosage: DATE OF LAST DOSE PRIOR TO SAE: 02/AUG/2014
     Route: 042
     Dates: start: 20140703, end: 20140703
  2. CYCLOPHOSPHAMIDE. [Suspect]
     Active Substance: CYCLOPHOSPHAMIDE
     Dosage: DATE OF LAST DOSE PRIOR TO SAE: 02/AUG/2014
     Route: 042
     Dates: start: 20140607, end: 20140607
  3. PARACETAMOL [Concomitant]
     Active Substance: ACETAMINOPHEN
     Route: 048
     Dates: start: 20140612, end: 20140612
  4. PARACETAMOL [Concomitant]
     Active Substance: ACETAMINOPHEN
     Route: 048
     Dates: start: 20140703, end: 20140703
  5. AMLOR [Concomitant]
     Active Substance: AMLODIPINE BESYLATE
     Route: 048
     Dates: start: 2004
  6. BETAHISTINE [Concomitant]
     Active Substance: BETAHISTINE
     Route: 048
     Dates: start: 2000
  7. OBINUTUZUMAB [Suspect]
     Active Substance: OBINUTUZUMAB
     Route: 042
     Dates: start: 20140606, end: 20140606
  8. OBINUTUZUMAB [Suspect]
     Active Substance: OBINUTUZUMAB
     Route: 042
     Dates: start: 20140612, end: 20140612
  9. FLUDARABINE [Suspect]
     Active Substance: FLUDARABINE PHOSPHATE
     Dosage: DATE OF LAST DOSE PRIOR TO SAE: 02/AUG/2014
     Route: 042
     Dates: start: 20140801, end: 20140801
  10. CYCLOPHOSPHAMIDE. [Suspect]
     Active Substance: CYCLOPHOSPHAMIDE
     Indication: CHRONIC LYMPHOCYTIC LEUKAEMIA
     Dosage: DATE OF LAST DOSE PRIOR TO SAE: 02/AUG/2014
     Route: 042
     Dates: start: 20140605, end: 20140605
  11. SOLU-MEDROL [Concomitant]
     Active Substance: METHYLPREDNISOLONE SODIUM SUCCINATE
     Route: 042
     Dates: start: 20140606, end: 20140606
  12. CETIRIZINE [Concomitant]
     Active Substance: CETIRIZINE HYDROCHLORIDE
     Route: 048
     Dates: start: 20140731, end: 20140731
  13. ZOFRAN [Concomitant]
     Active Substance: ONDANSETRON HYDROCHLORIDE
     Route: 042
     Dates: start: 20140703, end: 20140703
  14. ASAFLOW [Concomitant]
     Active Substance: ASPIRIN
     Route: 048
     Dates: start: 2004
  15. FLUDARABINE [Suspect]
     Active Substance: FLUDARABINE PHOSPHATE
     Dosage: DATE OF LAST DOSE PRIOR TO SAE: 02/AUG/2014
     Route: 042
     Dates: start: 20140731, end: 20140731
  16. CYCLOPHOSPHAMIDE. [Suspect]
     Active Substance: CYCLOPHOSPHAMIDE
     Dosage: DATE OF LAST DOSE PRIOR TO SAE: 02/AUG/2014
     Route: 042
     Dates: start: 20140802, end: 20140802
  17. SOLU-MEDROL [Concomitant]
     Active Substance: METHYLPREDNISOLONE SODIUM SUCCINATE
     Route: 042
     Dates: start: 20140605, end: 20140605
  18. SOLU-MEDROL [Concomitant]
     Active Substance: METHYLPREDNISOLONE SODIUM SUCCINATE
     Route: 042
     Dates: start: 20140703, end: 20140703
  19. CETIRIZINE [Concomitant]
     Active Substance: CETIRIZINE HYDROCHLORIDE
     Route: 048
     Dates: start: 20140605, end: 20140605
  20. PERFUSALGAN [Concomitant]
     Active Substance: ACETAMINOPHEN
     Route: 042
     Dates: start: 20140604, end: 20140604
  21. CYCLOPHOSPHAMIDE. [Suspect]
     Active Substance: CYCLOPHOSPHAMIDE
     Dosage: DATE OF LAST DOSE PRIOR TO SAE: 02/AUG/2014
     Route: 042
     Dates: start: 20140731, end: 20140731
  22. CETIRIZINE [Concomitant]
     Active Substance: CETIRIZINE HYDROCHLORIDE
     Route: 048
     Dates: start: 20140612, end: 20140612
  23. CETIRIZINE [Concomitant]
     Active Substance: CETIRIZINE HYDROCHLORIDE
     Route: 048
     Dates: start: 20140620, end: 20140620
  24. ZOFRAN [Concomitant]
     Active Substance: ONDANSETRON HYDROCHLORIDE
     Route: 042
     Dates: start: 20140605, end: 20140605
  25. ZOFRAN [Concomitant]
     Active Substance: ONDANSETRON HYDROCHLORIDE
     Route: 042
     Dates: start: 20140608, end: 20140608
  26. EUSAPRIM FORTE [Concomitant]
     Active Substance: SULFAMETHOXAZOLE\TRIMETHOPRIM
     Route: 048
     Dates: start: 20140609
  27. RAPIFEN [Concomitant]
     Active Substance: ALFENTANIL HYDROCHLORIDE
     Route: 042
     Dates: start: 20140604, end: 20140604
  28. OBINUTUZUMAB [Suspect]
     Active Substance: OBINUTUZUMAB
     Route: 042
     Dates: start: 20140620, end: 20140620
  29. OBINUTUZUMAB [Suspect]
     Active Substance: OBINUTUZUMAB
     Route: 042
     Dates: start: 20140703, end: 20140703
  30. FLUDARABINE [Suspect]
     Active Substance: FLUDARABINE PHOSPHATE
     Dosage: DATE OF LAST DOSE PRIOR TO SAE: 02/AUG/2014
     Route: 042
     Dates: start: 20140705, end: 20140705
  31. LASIX [Concomitant]
     Active Substance: FUROSEMIDE
     Route: 042
     Dates: start: 20140705, end: 20140705
  32. CHOLEMED [Concomitant]
     Route: 048
     Dates: start: 2008
  33. OBINUTUZUMAB [Suspect]
     Active Substance: OBINUTUZUMAB
     Indication: CHRONIC LYMPHOCYTIC LEUKAEMIA
     Route: 042
     Dates: start: 20140605, end: 20140605
  34. FLUDARABINE [Suspect]
     Active Substance: FLUDARABINE PHOSPHATE
     Dosage: DATE OF LAST DOSE PRIOR TO SAE: 02/AUG/2014
     Route: 042
     Dates: start: 20140606, end: 20140606
  35. FLUDARABINE [Suspect]
     Active Substance: FLUDARABINE PHOSPHATE
     Dosage: DATE OF LAST DOSE PRIOR TO SAE: 02/AUG/2014
     Route: 042
     Dates: start: 20140607, end: 20140607
  36. FLUDARABINE [Suspect]
     Active Substance: FLUDARABINE PHOSPHATE
     Dosage: DATE OF LAST DOSE PRIOR TO SAE: 02/AUG/2014
     Route: 042
     Dates: start: 20140802, end: 20140802
  37. CYCLOPHOSPHAMIDE. [Suspect]
     Active Substance: CYCLOPHOSPHAMIDE
     Dosage: DATE OF LAST DOSE PRIOR TO SAE: 02/AUG/2014
     Route: 042
     Dates: start: 20140606, end: 20140606
  38. PARACETAMOL [Concomitant]
     Active Substance: ACETAMINOPHEN
     Route: 048
     Dates: start: 20140606, end: 20140606
  39. FORLAX [Concomitant]
     Active Substance: POLYETHYLENE GLYCOL 4000
     Route: 048
     Dates: start: 20140705, end: 20140705
  40. OBINUTUZUMAB [Suspect]
     Active Substance: OBINUTUZUMAB
     Route: 042
     Dates: start: 20140731, end: 20140731
  41. FLUDARABINE [Suspect]
     Active Substance: FLUDARABINE PHOSPHATE
     Indication: CHRONIC LYMPHOCYTIC LEUKAEMIA
     Dosage: DATE OF LAST DOSE PRIOR TO SAE: 02/AUG/2014
     Route: 042
     Dates: start: 20140605, end: 20140605
  42. CYCLOPHOSPHAMIDE. [Suspect]
     Active Substance: CYCLOPHOSPHAMIDE
     Dosage: DATE OF LAST DOSE PRIOR TO SAE: 02/AUG/2014
     Route: 042
     Dates: start: 20140704, end: 20140704
  43. CYCLOPHOSPHAMIDE. [Suspect]
     Active Substance: CYCLOPHOSPHAMIDE
     Dosage: DATE OF LAST DOSE PRIOR TO SAE: 02/AUG/2014
     Route: 042
     Dates: start: 20140801, end: 20140801
  44. PARACETAMOL [Concomitant]
     Active Substance: ACETAMINOPHEN
     Route: 048
     Dates: start: 20140605, end: 20140605
  45. PARACETAMOL [Concomitant]
     Active Substance: ACETAMINOPHEN
     Route: 048
     Dates: start: 20140620, end: 20140620
  46. CETIRIZINE [Concomitant]
     Active Substance: CETIRIZINE HYDROCHLORIDE
     Route: 048
     Dates: start: 20140703, end: 20140703
  47. ZOFRAN [Concomitant]
     Active Substance: ONDANSETRON HYDROCHLORIDE
     Route: 042
     Dates: start: 20140704, end: 20140705
  48. ACICLOVIR [Concomitant]
     Active Substance: ACYCLOVIR
     Route: 048
     Dates: start: 20140608
  49. DORMICUM (BELGIUM) [Concomitant]
     Route: 042
     Dates: start: 20140604, end: 20140604
  50. FLUDARABINE [Suspect]
     Active Substance: FLUDARABINE PHOSPHATE
     Dosage: DATE OF LAST DOSE PRIOR TO SAE: 02/AUG/2014
     Route: 042
     Dates: start: 20140704, end: 20140704
  51. CYCLOPHOSPHAMIDE. [Suspect]
     Active Substance: CYCLOPHOSPHAMIDE
     Dosage: DATE OF LAST DOSE PRIOR TO SAE: 02/AUG/2014
     Route: 042
     Dates: start: 20140703, end: 20140703
  52. CYCLOPHOSPHAMIDE. [Suspect]
     Active Substance: CYCLOPHOSPHAMIDE
     Dosage: DATE OF LAST DOSE PRIOR TO SAE: 02/AUG/2014
     Route: 042
     Dates: start: 20140705, end: 20140705
  53. PARACETAMOL [Concomitant]
     Active Substance: ACETAMINOPHEN
     Route: 048
     Dates: start: 20140731, end: 20140731
  54. CETIRIZINE [Concomitant]
     Active Substance: CETIRIZINE HYDROCHLORIDE
     Route: 048
     Dates: start: 20140606, end: 20140606
  55. ZOFRAN [Concomitant]
     Active Substance: ONDANSETRON HYDROCHLORIDE
     Route: 042
     Dates: start: 20140606, end: 20140607

REACTIONS (1)
  - Campylobacter gastroenteritis [Recovered/Resolved]

NARRATIVE: CASE EVENT DATE: 20140808
